FAERS Safety Report 16508754 (Version 1)
Quarter: 2019Q3

REPORT INFORMATION
  Report Type: Report from Study
  Country: ES (occurrence: ES)
  Receive Date: 20190701
  Receipt Date: 20190701
  Transmission Date: 20191004
  Serious: Yes (Life-Threatening, Hospitalization)
  Sender: FDA-Public Use
  Company Number: ES-TEVA-2019-ES-1070870

PATIENT
  Age: 63 Year
  Sex: Male

DRUGS (6)
  1. ATORVASTATINA (7400A) [Suspect]
     Active Substance: ATORVASTATIN
     Indication: HYPERCHOLESTEROLAEMIA
     Dosage: 40MG PER DAY
     Route: 048
     Dates: start: 201412
  2. FERO-GRADUMET 105 MG COMPRIMIDOS DE LIBERACION PROLONGADA., 30 COMPRIM [Concomitant]
     Indication: ANAEMIA
     Dosage: 105 MG PER DAY
     Route: 048
     Dates: start: 201804
  3. NOVORAPID 100 U/ML SOLUCION INYECTABLE EN VIAL, 1 VIAL DE 10 ML [Concomitant]
     Indication: DIABETES MELLITUS
     Route: 058
     Dates: start: 201811
  4. ADIRO 100 MG COMPRIMIDOS GASTRORRESISTENTES EFG, 30 COMPRIMIDOS (POLIP [Interacting]
     Active Substance: ASPIRIN
     Indication: CEREBROVASCULAR ACCIDENT
     Dosage: 100MG PER DAY
     Route: 048
     Dates: start: 201507
  5. INSULINA GLARGINA (1165A) [Concomitant]
     Indication: DIABETES MELLITUS
     Dosage: 12 IU PER DAY
     Route: 058
     Dates: start: 201811
  6. ALDOCUMAR 1 MG COMPRIMIDOS, 40 COMPRIMIDOS [Interacting]
     Active Substance: WARFARIN SODIUM
     Indication: CARDIAC VALVE PROSTHESIS USER
     Route: 048
     Dates: start: 20180926

REACTIONS (2)
  - Upper gastrointestinal haemorrhage [Recovered/Resolved]
  - Drug interaction [Unknown]

NARRATIVE: CASE EVENT DATE: 20190204
